FAERS Safety Report 25777196 (Version 1)
Quarter: 2025Q3

REPORT INFORMATION
  Report Type: Spontaneous
  Country: US (occurrence: US)
  Receive Date: 20250909
  Receipt Date: 20250909
  Transmission Date: 20251020
  Serious: Yes (Death)
  Sender: KARYOPHARM THERAPEUTICS
  Company Number: US-KARYOPHARM-2025KPT100702

PATIENT

DRUGS (17)
  1. SELINEXOR [Suspect]
     Active Substance: SELINEXOR
     Indication: Plasma cell myeloma
     Route: 048
  2. ACYCLOVIR [Concomitant]
     Active Substance: ACYCLOVIR
  3. BUMETANIDE [Concomitant]
     Active Substance: BUMETANIDE
  4. DEXAMETHASONE [Concomitant]
     Active Substance: DEXAMETHASONE
  5. DULOXETINE [Concomitant]
     Active Substance: DULOXETINE
  6. ELIQUIS [Concomitant]
     Active Substance: APIXABAN
  7. FENTANYL [Concomitant]
     Active Substance: FENTANYL
  8. GABAPENTIN [Concomitant]
     Active Substance: GABAPENTIN
  9. METHOCARBAMOL [Concomitant]
     Active Substance: METHOCARBAMOL
  10. METOPROLOL TARTRATE [Concomitant]
     Active Substance: METOPROLOL TARTRATE
  11. OXYCODONE [Concomitant]
     Active Substance: OXYCODONE
  12. PREDNISONE [Concomitant]
     Active Substance: PREDNISONE
  13. SPIRONOLACTONE [Concomitant]
     Active Substance: SPIRONOLACTONE
  14. SUMATRIPTAN SUCCINATE [Concomitant]
     Active Substance: SUMATRIPTAN SUCCINATE
  15. TAMSULOSIN [Concomitant]
     Active Substance: TAMSULOSIN
  16. TRELEGY ELLIPTA [Concomitant]
     Active Substance: FLUTICASONE FUROATE\UMECLIDINIUM BROMIDE\VILANTEROL TRIFENATATE
  17. YUPELRI [Concomitant]
     Active Substance: REVEFENACIN

REACTIONS (1)
  - Death [Fatal]

NARRATIVE: CASE EVENT DATE: 20250901
